FAERS Safety Report 4407311-4 (Version None)
Quarter: 2004Q3

REPORT INFORMATION
  Report Type: 
  Country: None (occurrence: None)
  Receive Date: 20040721
  Receipt Date: 20040709
  Transmission Date: 20050211
  Serious: Yes (Death)
  Sender: FDA-Public Use
  Company Number: US-JNJFOC-20040500736

PATIENT
  Age: 81 Year
  Sex: Female
  Weight: 60.782 kg

DRUGS (7)
  1. REMINYL [Suspect]
     Indication: DEMENTIA ALZHEIMER'S TYPE
     Dosage: 8 MG, 2 IN 1 DAY, ORAL
     Route: 048
  2. PRAVACHOL [Concomitant]
  3. ESTRACE [Concomitant]
  4. ASPIRIN TAB [Concomitant]
  5. TENORETIC [Concomitant]
  6. MIACALCIN (CALCITONIN, SALMON) SPRAY [Concomitant]
  7. ACIPHEX [Concomitant]

REACTIONS (1)
  - DEATH [None]
